FAERS Safety Report 13739873 (Version 2)
Quarter: 2017Q3

REPORT INFORMATION
  Report Type: Spontaneous
  Country: US (occurrence: US)
  Receive Date: 20170711
  Receipt Date: 20170821
  Transmission Date: 20171127
  Serious: No
  Sender: FDA-Public Use
  Company Number: PHEH2017US020704

PATIENT
  Sex: Female

DRUGS (1)
  1. CIPRODEX [Suspect]
     Active Substance: CIPROFLOXACIN HYDROCHLORIDE\DEXAMETHASONE
     Indication: PRODUCT USED FOR UNKNOWN INDICATION
     Dosage: 4 GTT, TID
     Route: 001

REACTIONS (4)
  - Product quality issue [Unknown]
  - Hypoacusis [Unknown]
  - Balance disorder [Unknown]
  - Ear pain [Unknown]
